FAERS Safety Report 14991740 (Version 3)
Quarter: 2020Q2

REPORT INFORMATION
  Report Type: Report from Study
  Country: DE (occurrence: DE)
  Receive Date: 20180608
  Receipt Date: 20200514
  Transmission Date: 20200713
  Serious: Yes (Other)
  Sender: FDA-Public Use
  Company Number: DE-BIOGEN-2018BI00591161

PATIENT
  Sex: Female
  Weight: 64 kg

DRUGS (3)
  1. AVONEX [Suspect]
     Active Substance: INTERFERON BETA-1A
     Indication: MULTIPLE SCLEROSIS
     Route: 030
  2. AVONEX [Suspect]
     Active Substance: INTERFERON BETA-1A
     Dosage: THERAPY RESTART
     Route: 050
     Dates: start: 201709
  3. AVONEX [Suspect]
     Active Substance: INTERFERON BETA-1A
     Indication: MULTIPLE SCLEROSIS
     Route: 050
     Dates: start: 20080901, end: 2016

REACTIONS (4)
  - Premature rupture of membranes [Recovered/Resolved]
  - Premature delivery [Recovered/Resolved]
  - Haemorrhage in pregnancy [Recovered/Resolved]
  - Maternal exposure during pregnancy [Recovered/Resolved]
